FAERS Safety Report 24581314 (Version 2)
Quarter: 2024Q4

REPORT INFORMATION
  Report Type: Spontaneous
  Country: DE (occurrence: DE)
  Receive Date: 20241105
  Receipt Date: 20241224
  Transmission Date: 20250114
  Serious: Yes (Other)
  Sender: NOVARTIS
  Company Number: DE-002147023-NVSC2024DE208879

PATIENT
  Age: 30 Year
  Sex: Female

DRUGS (1)
  1. COSENTYX [Suspect]
     Active Substance: SECUKINUMAB
     Indication: Hidradenitis
     Dosage: 300 MG, Q4W
     Route: 058
     Dates: start: 202406

REACTIONS (4)
  - Pharyngeal abscess [Unknown]
  - COVID-19 [Unknown]
  - Influenza [Unknown]
  - Hidradenitis [Unknown]

NARRATIVE: CASE EVENT DATE: 20240101
